FAERS Safety Report 22326282 (Version 1)
Quarter: 2023Q2

REPORT INFORMATION
  Report Type: Spontaneous
  Country: US (occurrence: US)
  Receive Date: 20230516
  Receipt Date: 20230516
  Transmission Date: 20230721
  Serious: No
  Sender: FDA-Public Use
  Company Number: US-RADIUS HEALTH INC.-2022US003613

PATIENT
  Sex: Female

DRUGS (1)
  1. TYMLOS [Suspect]
     Active Substance: ABALOPARATIDE
     Indication: Senile osteoporosis
     Dosage: 80 MICROGRAM, QD
     Route: 058
     Dates: start: 20220121

REACTIONS (5)
  - Tinnitus [Unknown]
  - Head discomfort [Unknown]
  - Muscle spasms [Unknown]
  - Dizziness [Recovering/Resolving]
  - Nausea [Recovering/Resolving]
